FAERS Safety Report 25165884 (Version 3)
Quarter: 2025Q2

REPORT INFORMATION
  Report Type: Spontaneous
  Country: JP (occurrence: JP)
  Receive Date: 20250407
  Receipt Date: 20250606
  Transmission Date: 20250717
  Serious: Yes (Other)
  Sender: TAKEDA
  Company Number: JP-TAKEDA-2025TJP003489

PATIENT
  Age: 59 Year
  Sex: Female

DRUGS (4)
  1. INTUNIV [Suspect]
     Active Substance: GUANFACINE HYDROCHLORIDE
     Indication: Attention deficit hyperactivity disorder
  2. CONCERTA [Suspect]
     Active Substance: METHYLPHENIDATE HYDROCHLORIDE
     Indication: Product used for unknown indication
  3. ATOMOXETINE HYDROCHLORIDE [Concomitant]
     Active Substance: ATOMOXETINE HYDROCHLORIDE
  4. VALPROATE SODIUM [Concomitant]
     Active Substance: VALPROATE SODIUM

REACTIONS (2)
  - Atrial fibrillation [Unknown]
  - Somnolence [Not Recovered/Not Resolved]
